FAERS Safety Report 5034551-6 (Version None)
Quarter: 2006Q2

REPORT INFORMATION
  Report Type: 
  Country: None (occurrence: None)
  Receive Date: 20060621
  Receipt Date: 20060608
  Transmission Date: 20061013
  Serious: Yes (Other)
  Sender: FDA-Public Use
  Company Number: CIP06001350

PATIENT
  Age: 65 Year
  Sex: Female

DRUGS (1)
  1. ACTONEL [Suspect]
     Indication: OSTEOPOROSIS
     Dosage: 35 MG ONCE WEEKLY, ORAL
     Route: 048
     Dates: start: 20050301, end: 20060601

REACTIONS (5)
  - DENTAL ALVEOLAR ANOMALY [None]
  - JAW DISORDER [None]
  - LOOSE TOOTH [None]
  - RESORPTION BONE INCREASED [None]
  - TOOTH EXTRACTION [None]
